FAERS Safety Report 8252357-1 (Version None)
Quarter: 2012Q2

REPORT INFORMATION
  Report Type: 
  Country: None (occurrence: None)
  Receive Date: 20120402
  Receipt Date: 20110503
  Transmission Date: 20120825
  Serious: No
  Sender: FDA-Public Use
  Company Number: US-ABBOTT-11P-163-0804531-00

PATIENT
  Sex: Male
  Weight: 100.91 kg

DRUGS (12)
  1. FENTANYL [Concomitant]
     Indication: PAIN
     Dosage: DAILY DOSE:  UNKNOWN, AS USED: 25 MILLIGRAM, FREQUENCY: 1 IN 2 DAYS
     Route: 065
  2. IRBESARTAN [Concomitant]
     Indication: PRODUCT USED FOR UNKNOWN INDICATION
     Dosage: DAILY DOSE: 150 MILLIGRAM(S)
     Route: 048
  3. GABAPENTIN [Concomitant]
     Indication: PRODUCT USED FOR UNKNOWN INDICATION
     Dosage: DAILY DOSE: 3600 MILLIGRAM(S)
     Route: 048
  4. TESTOSTERONE [Suspect]
     Dosage: DAILY DOSE:  UNKNOWN, 60-80 GRAMS (10 GRAMS PER DOSE, 6 PUMPS QD)
     Route: 062
     Dates: start: 20090101, end: 20090101
  5. QUETIAPINE [Concomitant]
     Indication: SLEEP DISORDER
     Dosage: DAILY DOSE: 200 MILLIGRAM(S)
     Route: 048
  6. TESTOSTERONE [Suspect]
     Dosage: DAILY DOSE:  UNKNOWN, 60-80 GRAMS (10 GRAMS PER DOSE, 6 PUMPS QD)
     Route: 062
     Dates: start: 20100101, end: 20110501
  7. OXYCODONE [Concomitant]
     Indication: PRODUCT USED FOR UNKNOWN INDICATION
     Dosage: DAILY DOSE: 90 MILLIGRAM(S)
     Route: 048
  8. PRAVASTATIN [Concomitant]
     Indication: PRODUCT USED FOR UNKNOWN INDICATION
     Dosage: DAILY DOSE: 40 MILLIGRAM(S)
     Route: 048
  9. TESTOSTERONE [Suspect]
     Dosage: DAILY DOSE:  UNKNOWN, 60-80 GRAMS (10 GRAMS PER DOSE, 6 PUMPS QD)
     Route: 062
     Dates: start: 20030101, end: 20030101
  10. TESTOSTERONE [Suspect]
     Indication: BLOOD TESTOSTERONE DECREASED
     Dosage: DAILY DOSE:  UNKNOWN, 60-80 GRAMS (10 GRAMS PER DOSE, 6 PUMPS QD)
     Route: 062
     Dates: start: 20030101, end: 20030101
  11. ROPINIROLE [Concomitant]
     Indication: RESTLESS LEGS SYNDROME
     Dosage: DAILY DOSE: 25 MILLIGRAM(S), 4 TABLETS
     Route: 048
  12. QUETIAPINE [Concomitant]
     Indication: DEPRESSION

REACTIONS (4)
  - DRUG INEFFECTIVE [None]
  - HYPERHIDROSIS [None]
  - BREAST PAIN [None]
  - GYNAECOMASTIA [None]
